FAERS Safety Report 5252952-8 (Version None)
Quarter: 2007Q1

REPORT INFORMATION
  Report Type: 
  Country: None (occurrence: None)
  Receive Date: 20070227
  Receipt Date: 20070207
  Transmission Date: 20070707
  Serious: Yes (Death, Congenital Anomaly, Other)
  Sender: FDA-Public Use
  Company Number: STI-2007-00023

PATIENT
  Sex: Male

DRUGS (5)
  1. ERYTHROMYCIN [Suspect]
     Route: 064
  2. PREDNISOLONE [Suspect]
     Route: 064
  3. INSULIN [Suspect]
     Route: 064
  4. MINOCYCLINE HCL [Concomitant]
  5. OXYTETRACYCLINE [Concomitant]

REACTIONS (5)
  - DRUG EXPOSURE DURING PREGNANCY [None]
  - FOETAL ARRHYTHMIA [None]
  - FOETAL MOVEMENTS DECREASED [None]
  - OLIGOHYDRAMNIOS [None]
  - STILLBIRTH [None]
